FAERS Safety Report 7649693-6 (Version None)
Quarter: 2011Q3

REPORT INFORMATION
  Report Type: 
  Country: None (occurrence: None)
  Receive Date: 20110802
  Receipt Date: 20110726
  Transmission Date: 20111222
  Serious: Yes (Death)
  Sender: FDA-Public Use
  Company Number: JP-JNJFOC-20100307934

PATIENT
  Sex: Female
  Weight: 65 kg

DRUGS (1)
  1. DOXORUBICIN HCL [Suspect]
     Indication: OVARIAN CANCER RECURRENT
     Route: 042
     Dates: start: 20100119, end: 20100119

REACTIONS (3)
  - SMALL INTESTINAL PERFORATION [None]
  - PNEUMONIA ASPIRATION [None]
  - OVARIAN CANCER [None]
